FAERS Safety Report 23790224 (Version 1)
Quarter: 2024Q2

REPORT INFORMATION
  Report Type: Report from Study
  Country: FR (occurrence: FR)
  Receive Date: 20240426
  Receipt Date: 20240426
  Transmission Date: 20240716
  Serious: Yes (Death, Hospitalization, Other)
  Sender: FDA-Public Use
  Company Number: FR-BIOMARINP-002338

PATIENT

DRUGS (1)
  1. NAGLAZYME [Suspect]
     Active Substance: GALSULFASE
     Indication: Mucopolysaccharidosis VI
     Dosage: .5MG/KG,QW
     Route: 042
     Dates: start: 20070201

REACTIONS (2)
  - Anaesthetic complication [Fatal]
  - Spinal cord compression [Unknown]

NARRATIVE: CASE EVENT DATE: 20120117
